FAERS Safety Report 11389467 (Version 1)
Quarter: 2015Q3

REPORT INFORMATION
  Report Type: Report from Study
  Country: US (occurrence: US)
  Receive Date: 20150817
  Receipt Date: 20150817
  Transmission Date: 20151125
  Serious: Yes (Death, Hospitalization)
  Sender: FDA-Public Use
  Company Number: US-ACTELION-A-US2013-78512

PATIENT
  Age: 49 Year
  Sex: Female

DRUGS (5)
  1. VELETRI [Suspect]
     Active Substance: EPOPROSTENOL
     Indication: PULMONARY ARTERIAL HYPERTENSION
     Dosage: 20 NG/KG, PER MIN
     Route: 042
     Dates: start: 20120810
  2. WARFARIN [Concomitant]
     Active Substance: WARFARIN
  3. VELETRI [Suspect]
     Active Substance: EPOPROSTENOL
     Dosage: 22 UNK, UNK
     Route: 042
     Dates: start: 20120810
  4. SILDENAFIL. [Concomitant]
     Active Substance: SILDENAFIL
  5. VELETRI [Suspect]
     Active Substance: EPOPROSTENOL
     Dosage: 2.6 NG/KG, UNK
     Route: 042

REACTIONS (6)
  - Angina pectoris [Unknown]
  - Death [Fatal]
  - Fluid retention [Unknown]
  - Catheter site erythema [Recovered/Resolved]
  - Fluid overload [Unknown]
  - Cardiac failure [Unknown]

NARRATIVE: CASE EVENT DATE: 20130222
